FAERS Safety Report 7551432-4 (Version None)
Quarter: 2011Q2

REPORT INFORMATION
  Report Type: 
  Country: None (occurrence: None)
  Receive Date: 20110616
  Receipt Date: 20110608
  Transmission Date: 20111010
  Serious: No
  Sender: FDA-Public Use
  Company Number: BR-ROCHE-781594

PATIENT
  Sex: Female

DRUGS (2)
  1. ISOTRETINOIN [Suspect]
     Indication: ACNE
     Route: 065
     Dates: start: 20100701, end: 20110413
  2. SELENE [Suspect]
     Route: 065

REACTIONS (3)
  - PREGNANCY [None]
  - NO ADVERSE EVENT [None]
  - DRUG EXPOSURE DURING PREGNANCY [None]
